FAERS Safety Report 12212222 (Version 1)
Quarter: 2016Q1

REPORT INFORMATION
  Report Type: Other
  Country: US (occurrence: US)
  Receive Date: 20160325
  Receipt Date: 20160325
  Transmission Date: 20160526
  Serious: No
  Sender: FDA-Public Use
  Company Number: US-DEP_02269_2014

PATIENT
  Sex: Female
  Weight: 58 kg

DRUGS (12)
  1. TECFIDERA [Concomitant]
     Active Substance: DIMETHYL FUMARATE
     Indication: MULTIPLE SCLEROSIS
     Dates: start: 201401
  2. PAXIL [Concomitant]
     Active Substance: PAROXETINE HYDROCHLORIDE
     Indication: ANXIETY
     Dates: start: 2009
  3. AMITRIPTYLINE [Concomitant]
     Active Substance: AMITRIPTYLINE
     Indication: HEADACHE
     Dates: start: 1995
  4. FIORICET [Concomitant]
     Active Substance: ACETAMINOPHEN\BUTALBITAL\CAFFEINE
     Indication: NEURALGIA
     Dosage: DF
     Dates: start: 2012
  5. PAXIL [Concomitant]
     Active Substance: PAROXETINE HYDROCHLORIDE
     Indication: DEPRESSION
     Dates: start: 2009
  6. HYDROCODONE [Concomitant]
     Active Substance: HYDROCODONE
     Indication: NEURALGIA
     Dosage: 5/500, DF
     Dates: start: 2012
  7. GRALISE [Suspect]
     Active Substance: GABAPENTIN
     Indication: NEURALGIA
     Dosage: TITRATED UP TO 1800 MG, ONCE DAILY, IN THE EVENING
     Route: 048
     Dates: start: 201307, end: 20150128
  8. GRALISE [Suspect]
     Active Substance: GABAPENTIN
     Indication: MULTIPLE SCLEROSIS
     Dosage: TITRATED UP TO 1800 MG, ONCE DAILY, IN THE EVENING
     Route: 048
     Dates: start: 201307, end: 20150128
  9. HYDROCODONE [Concomitant]
     Active Substance: HYDROCODONE
     Indication: HEADACHE
     Dosage: 5/500, DF
     Dates: start: 2012
  10. GRALISE [Suspect]
     Active Substance: GABAPENTIN
     Indication: OFF LABEL USE
     Dosage: TITRATED UP TO 1800 MG, ONCE DAILY, IN THE EVENING
     Route: 048
     Dates: start: 201307, end: 20150128
  11. SYNTHROID [Concomitant]
     Active Substance: LEVOTHYROXINE SODIUM
     Indication: THYROID DISORDER
     Dates: start: 2000
  12. FIORICET [Concomitant]
     Active Substance: ACETAMINOPHEN\BUTALBITAL\CAFFEINE
     Indication: HEADACHE
     Dosage: DF
     Dates: start: 2012

REACTIONS (1)
  - Fatigue [Not Recovered/Not Resolved]
